FAERS Safety Report 10195825 (Version 2)
Quarter: 2014Q2

REPORT INFORMATION
  Report Type: Spontaneous
  Country: CN (occurrence: None)
  Receive Date: 20140521
  Receipt Date: 20140522
  Transmission Date: 20141212
  Serious: Yes (Other)
  Sender: FDA-Public Use
  Company Number: SYM-2013-03832

PATIENT
  Age: 27 Year
  Sex: Female

DRUGS (1)
  1. VISUDYNE [Suspect]
     Indication: CHORIORETINOPATHY
     Route: 042
     Dates: start: 20130506, end: 20140506

REACTIONS (3)
  - Hypersensitivity [None]
  - Restlessness [None]
  - Dysphoria [None]
